FAERS Safety Report 7352205-8 (Version None)
Quarter: 2011Q1

REPORT INFORMATION
  Report Type: 
  Country: None (occurrence: None)
  Receive Date: 20110315
  Receipt Date: 20110303
  Transmission Date: 20110831
  Serious: Yes (Other)
  Sender: FDA-Public Use
  Company Number: US-PAR PHARMACEUTICAL, INC-2010SCPR001988

PATIENT

DRUGS (1)
  1. NASCOBAL [Suspect]
     Indication: VITAMIN B12 DEFICIENCY
     Dosage: 1 DF, WEEKLY
     Route: 045
     Dates: start: 20100528, end: 20100701

REACTIONS (3)
  - ISCHAEMIC STROKE [None]
  - APPLICATION SITE DISCOMFORT [None]
  - PRODUCT QUALITY ISSUE [None]
